FAERS Safety Report 5400071-X (Version None)
Quarter: 2007Q3

REPORT INFORMATION
  Report Type: 
  Country: None (occurrence: None)
  Receive Date: 20070726
  Receipt Date: 20070726
  Transmission Date: 20080115
  Serious: Yes (Other)
  Sender: FDA-Public Use
  Company Number: None

PATIENT
  Sex: Female

DRUGS (6)
  1. REVLIMID [Suspect]
     Indication: MULTIPLE MYELOMA
     Dosage: 15MG  DAILY 21D/28D   PO
     Route: 048
  2. PROCRIT [Concomitant]
  3. DEXAMETHASONE 0.5MG TAB [Concomitant]
  4. MIRALAX [Concomitant]
  5. LOVASTATIN [Concomitant]
  6. OMEPRAZOLE [Concomitant]

REACTIONS (1)
  - WHITE BLOOD CELL COUNT DECREASED [None]
